FAERS Safety Report 23856851 (Version 1)
Quarter: 2024Q2

REPORT INFORMATION
  Report Type: Spontaneous
  Country: IT (occurrence: IT)
  Receive Date: 20240515
  Receipt Date: 20240515
  Transmission Date: 20240716
  Serious: Yes (Other)
  Sender: FDA-Public Use
  Company Number: None

PATIENT
  Age: 74 Year
  Sex: Female

DRUGS (11)
  1. CAPECITABINE [Suspect]
     Active Substance: CAPECITABINE
     Indication: Colon cancer stage IV
     Dates: start: 20220520
  2. CAPECITABINE [Suspect]
     Active Substance: CAPECITABINE
     Indication: Colon cancer stage IV
     Dosage: 27TH CHEMOTHERAPY CYCLE?DAILY DOSE: 2 GRAM
     Route: 048
     Dates: start: 20230817, end: 20230830
  3. CAPECITABINE [Suspect]
     Active Substance: CAPECITABINE
     Indication: Colon cancer stage IV
     Dosage: BID, TREATMENT SCHEDULE: G1-G14, Q21?DAILY DOSE: 2000 MILLIGRAM
     Route: 048
     Dates: start: 20231129, end: 20231212
  4. CAPECITABINE [Suspect]
     Active Substance: CAPECITABINE
     Indication: Colon cancer stage IV
     Dosage: BID, TREATMENT SCHEDULE CAPECITABINE: G1-G14, Q21.?DAILY DOSE: 2000 MILLIGRAM
     Route: 048
     Dates: start: 20231221, end: 20240103
  5. CAPECITABINE [Suspect]
     Active Substance: CAPECITABINE
     Indication: Colon cancer stage IV
     Dosage: BID, THERAPEUTIC SCHEME: G1-G14, Q21?DAILY DOSE: 2000 MILLIGRAM
     Route: 048
     Dates: start: 20240111, end: 20240124
  6. CAPECITABINE [Suspect]
     Active Substance: CAPECITABINE
     Indication: Colon cancer stage IV
     Dosage: BID, TREATMENT PATTERN: G1-G14, Q21.?DAILY DOSE: 2000 MILLIGRAM
     Route: 048
     Dates: start: 20240222, end: 20240306
  7. AVASTIN [Suspect]
     Active Substance: BEVACIZUMAB
     Indication: Colon cancer stage IV
     Route: 042
     Dates: start: 20230830, end: 20230830
  8. AVASTIN [Suspect]
     Active Substance: BEVACIZUMAB
     Indication: Colon cancer stage IV
     Route: 042
     Dates: start: 20231129, end: 20231129
  9. AVASTIN [Suspect]
     Active Substance: BEVACIZUMAB
     Indication: Colon cancer stage IV
     Route: 042
     Dates: start: 20240111, end: 20240111
  10. AVASTIN [Suspect]
     Active Substance: BEVACIZUMAB
     Indication: Colon cancer stage IV
     Route: 042
     Dates: start: 20240222, end: 20240222
  11. AMLODIPINE BESYLATE\OLMESARTAN MEDOXOMIL [Concomitant]
     Active Substance: AMLODIPINE BESYLATE\OLMESARTAN MEDOXOMIL

REACTIONS (5)
  - Hypertensive crisis [Recovering/Resolving]
  - Pruritus [Recovering/Resolving]
  - Palmar-plantar erythrodysaesthesia syndrome [Recovering/Resolving]
  - Muscle spasms [Recovering/Resolving]
  - Proteinuria [Unknown]

NARRATIVE: CASE EVENT DATE: 20230901
